FAERS Safety Report 7227762-2 (Version None)
Quarter: 2011Q1

REPORT INFORMATION
  Report Type: 
  Country: None (occurrence: None)
  Receive Date: 20110114
  Receipt Date: 20110110
  Transmission Date: 20110831
  Serious: Yes (Hospitalization)
  Sender: FDA-Public Use
  Company Number: FR-PFIZER INC-FR-WYE-G04958909

PATIENT
  Age: 15 Year
  Sex: Male
  Weight: 40 kg

DRUGS (23)
  1. AMBISOME [Suspect]
     Indication: FUNGAL INFECTION
     Dosage: 100 MG, 1X/DAY
     Route: 042
     Dates: start: 20091026, end: 20091030
  2. OGAST [Concomitant]
     Route: 065
  3. ZOPHREN [Concomitant]
     Route: 065
  4. AMIKLIN [Concomitant]
     Dosage: UNK
     Route: 042
     Dates: start: 20091021
  5. PRIMPERAN TAB [Concomitant]
     Route: 065
  6. FLAGYL [Concomitant]
     Dosage: UNK
     Route: 048
     Dates: start: 20091024
  7. DOLIPRANE [Concomitant]
     Route: 065
  8. SPASFON [Concomitant]
     Route: 065
  9. DEROXAT [Concomitant]
     Route: 065
  10. TAZOCILLINE [Suspect]
     Indication: RESPIRATORY TRACT INFECTION
     Dosage: 3.2 G, 4X/DAY
     Route: 042
     Dates: start: 20091021, end: 20091028
  11. XANAX [Concomitant]
     Route: 065
  12. INIPOMP [Concomitant]
     Route: 065
  13. NEUPOGEN [Suspect]
     Indication: FEBRILE BONE MARROW APLASIA
     Dosage: 30 MILLIONIU, 1X/DAY
     Route: 042
     Dates: start: 20091021, end: 20091030
  14. RIVOTRIL [Concomitant]
     Route: 065
  15. ZELITREX [Concomitant]
     Dosage: UNK
     Route: 048
     Dates: start: 20091014
  16. BACTRIM DS [Concomitant]
     Dosage: UNK
     Route: 048
     Dates: start: 20091023
  17. LARGACTIL [Concomitant]
     Route: 065
  18. LASIX [Concomitant]
     Route: 065
  19. PURINETHOL [Concomitant]
     Route: 065
  20. ZOLOFT [Concomitant]
     Route: 065
  21. TIENAM [Suspect]
     Indication: RESPIRATORY TRACT INFECTION
     Dosage: 500 MG, 3X/DAY
     Route: 042
     Dates: start: 20091028
  22. DECTANCYL [Concomitant]
     Route: 065
  23. NEXIUM [Concomitant]
     Route: 065

REACTIONS (4)
  - CHOLESTASIS [None]
  - HEPATOMEGALY [None]
  - PROTHROMBIN TIME PROLONGED [None]
  - JAUNDICE [None]
